FAERS Safety Report 8014319-9 (Version None)
Quarter: 2011Q4

REPORT INFORMATION
  Report Type: 
  Country: None (occurrence: None)
  Receive Date: 20111229
  Receipt Date: 20111223
  Transmission Date: 20120403
  Serious: Yes (Disabling)
  Sender: FDA-Public Use
  Company Number: GB-PFIZER INC-2011313737

PATIENT
  Age: 17 Year
  Sex: Male

DRUGS (1)
  1. SERTRALINE HYDROCHLORIDE [Suspect]
     Dosage: 50 MG, UNK
     Route: 048
     Dates: start: 20111102, end: 20111126

REACTIONS (5)
  - NIGHTMARE [None]
  - DISSOCIATION [None]
  - IRRITABILITY [None]
  - AGITATION [None]
  - CONFUSIONAL STATE [None]
